FAERS Safety Report 5276640-7 (Version None)
Quarter: 2007Q1

REPORT INFORMATION
  Report Type: 
  Country: None (occurrence: None)
  Receive Date: 20070327
  Receipt Date: 20070315
  Transmission Date: 20070707
  Serious: Yes (Hospitalization)
  Sender: FDA-Public Use
  Company Number: US-JNJFOC-20070303739

PATIENT
  Sex: Female

DRUGS (14)
  1. INFLIXIMAB [Suspect]
     Indication: RHEUMATOID ARTHRITIS
     Route: 042
  2. BUFFERIN [Concomitant]
     Dosage: 325MG 6 TABS DAILY
  3. CALCIUM [Concomitant]
  4. CARAFATE [Concomitant]
  5. EVISTA [Concomitant]
  6. IBUPROFEN [Concomitant]
  7. LIBRIUM [Concomitant]
  8. METHOTREXATE [Concomitant]
  9. MULTI-VITAMIN [Concomitant]
  10. PREDNISONE [Concomitant]
  11. VICODIN [Concomitant]
  12. ZOMETA [Concomitant]
  13. VITAMIN B COMPLEX CAP [Concomitant]
  14. ASCORBIC ACID [Concomitant]

REACTIONS (1)
  - B-CELL LYMPHOMA [None]
